FAERS Safety Report 8588475-8 (Version None)
Quarter: 2012Q3

REPORT INFORMATION
  Report Type: 
  Country: None (occurrence: None)
  Receive Date: 20120813
  Receipt Date: 20120806
  Transmission Date: 20120928
  Serious: Yes (Hospitalization)
  Sender: FDA-Public Use
  Company Number: ZA-SANOFI-AVENTIS-2012SA056234

PATIENT
  Age: 72 Year
  Sex: Male

DRUGS (8)
  1. APIDRA SOLOSTAR [Suspect]
     Indication: TYPE 2 DIABETES MELLITUS
     Dosage: DOSE:42 UNIT(S)
     Route: 058
     Dates: start: 20110613
  2. SOLOSTAR [Suspect]
     Dates: start: 20110613
  3. SOLOSTAR [Suspect]
     Indication: DEVICE THERAPY
     Dates: start: 20110613
  4. RAMIPRIL [Concomitant]
     Indication: HYPERTENSION
     Route: 048
  5. LANOXIN [Concomitant]
     Route: 048
  6. METFORMIN HYDROCHLORIDE [Concomitant]
     Route: 048
     Dates: start: 20110613
  7. LANTUS SOLOSTAR [Suspect]
     Indication: TYPE 2 DIABETES MELLITUS
     Dosage: DOSE:40 UNIT(S)
     Route: 058
     Dates: start: 20110613
  8. CARVEDILOL [Concomitant]
     Indication: HYPERTENSION
     Route: 048

REACTIONS (3)
  - DEHYDRATION [None]
  - VOMITING [None]
  - DISORIENTATION [None]
